FAERS Safety Report 11945366 (Version 1)
Quarter: 2016Q1

REPORT INFORMATION
  Report Type: Spontaneous
  Country: IT (occurrence: IT)
  Receive Date: 20160125
  Receipt Date: 20160125
  Transmission Date: 20160526
  Serious: Yes (Other)
  Sender: FDA-Public Use
  Company Number: IT-ELI_LILLY_AND_COMPANY-IT201601008435

PATIENT
  Age: 37 Year
  Sex: Female

DRUGS (2)
  1. FLUOXETINE HYDROCHLORIDE. [Suspect]
     Active Substance: FLUOXETINE HYDROCHLORIDE
     Indication: WEIGHT DECREASED
     Dosage: UNK, UNKNOWN
     Route: 065
  2. FUROSEMIDE. [Suspect]
     Active Substance: FUROSEMIDE
     Indication: WEIGHT DECREASED
     Dosage: UNK, UNKNOWN
     Route: 065

REACTIONS (4)
  - Exophthalmos [Unknown]
  - Hypokalaemia [Unknown]
  - Off label use [Unknown]
  - Syncope [Unknown]
